FAERS Safety Report 17093166 (Version 1)
Quarter: 2019Q4

REPORT INFORMATION
  Report Type: Spontaneous
  Country: DE (occurrence: DE)
  Receive Date: 20191129
  Receipt Date: 20191129
  Transmission Date: 20200122
  Serious: Yes (Other)
  Sender: FDA-Public Use
  Company Number: DE-TEVA-2019-DE-1143422

PATIENT
  Age: 30 Year
  Sex: Female

DRUGS (1)
  1. COPAXONE [Suspect]
     Active Substance: GLATIRAMER ACETATE
     Indication: MULTIPLE SCLEROSIS
     Dates: start: 2017

REACTIONS (16)
  - Injection site erythema [Unknown]
  - Rash pruritic [Unknown]
  - Vomiting [Unknown]
  - Injection site induration [Unknown]
  - Swelling face [Unknown]
  - Rash [Unknown]
  - Palpitations [Unknown]
  - Dysphagia [Unknown]
  - Rash [Unknown]
  - Presyncope [Unknown]
  - Injection site rash [Unknown]
  - Injection site pain [Unknown]
  - Dizziness [Unknown]
  - Anaphylactic shock [Recovered/Resolved]
  - Abdominal pain upper [Unknown]
  - Injection site pruritus [Unknown]

NARRATIVE: CASE EVENT DATE: 2018
